FAERS Safety Report 25205203 (Version 2)
Quarter: 2025Q2

REPORT INFORMATION
  Report Type: Report from Study
  Country: GB (occurrence: GB)
  Receive Date: 20250417
  Receipt Date: 20250507
  Transmission Date: 20250717
  Serious: Yes (Hospitalization, Other)
  Sender: ABBVIE
  Company Number: GB-ABBVIE-6223152

PATIENT
  Age: 60 Year
  Sex: Male

DRUGS (9)
  1. SKYRIZI [Suspect]
     Active Substance: RISANKIZUMAB-RZAA
     Indication: Psoriasis
     Route: 058
     Dates: start: 20240810
  2. Kitruda [Concomitant]
     Indication: Product used for unknown indication
  3. MORPHINE SULFATE [Concomitant]
     Active Substance: MORPHINE SULFATE
     Indication: Product used for unknown indication
     Dates: start: 20250123
  4. LEVOMEPROMAZINE [Concomitant]
     Active Substance: LEVOMEPROMAZINE
     Indication: Product used for unknown indication
     Dates: start: 20250211
  5. ONDANSETRON [Concomitant]
     Active Substance: ONDANSETRON
     Indication: Product used for unknown indication
     Dates: start: 20250211
  6. FOLIC ACID [Concomitant]
     Active Substance: FOLIC ACID
     Indication: Product used for unknown indication
     Dates: start: 20250221
  7. HYDROXOCOBALAMIN [Concomitant]
     Active Substance: HYDROXOCOBALAMIN
     Indication: Product used for unknown indication
     Dates: start: 20250221
  8. ACETYLCYSTEINE [Concomitant]
     Active Substance: ACETYLCYSTEINE
     Indication: Product used for unknown indication
     Dates: start: 20250304
  9. Benzydamine hcl amel [Concomitant]
     Indication: Product used for unknown indication
     Dates: start: 20250326

REACTIONS (9)
  - Pleural effusion [Not Recovered/Not Resolved]
  - Human epidermal growth factor receptor negative [Unknown]
  - PD-L1 protein expression [Unknown]
  - Staphylococcal infection [Unknown]
  - Lung adenocarcinoma [Unknown]
  - Anti-epithelial antibody positive [Unknown]
  - Oestrogen receptor assay positive [Unknown]
  - Thyroid function test abnormal [Unknown]
  - Atelectasis [Unknown]

NARRATIVE: CASE EVENT DATE: 20241119
